FAERS Safety Report 13436017 (Version 2)
Quarter: 2017Q2

REPORT INFORMATION
  Report Type: Spontaneous
  Country: US (occurrence: US)
  Receive Date: 20170413
  Receipt Date: 20170426
  Transmission Date: 20170830
  Serious: Yes (Other)
  Sender: FDA-Public Use
  Company Number: US-INDIVIOR LIMITED-INDV-100350-2017

PATIENT
  Age: 56 Year
  Sex: Male

DRUGS (4)
  1. SUBOXONE [Suspect]
     Active Substance: BUPRENORPHINE HYDROCHLORIDE\NALOXONE HYDROCHLORIDE
     Indication: PAIN
     Dosage: 8 MG, TID
     Route: 065
     Dates: start: 20170330
  2. OXYCONTIN [Suspect]
     Active Substance: OXYCODONE HYDROCHLORIDE
     Indication: PAIN
     Dosage: UNK
     Route: 065
  3. STEROIDS [Concomitant]
     Active Substance: UNSPECIFIED INGREDIENT
     Indication: ARTHRODESIS
     Dosage: UNK
     Route: 051
     Dates: start: 20170403
  4. SUBOXONE [Suspect]
     Active Substance: BUPRENORPHINE HYDROCHLORIDE\NALOXONE HYDROCHLORIDE
     Indication: DRUG USE DISORDER
     Dosage: 8 MG, QID
     Route: 065
     Dates: start: 20170325, end: 20170329

REACTIONS (9)
  - Suicidal ideation [Unknown]
  - Product use issue [Unknown]
  - Fear [Unknown]
  - Anxiety [Unknown]
  - Panic attack [Unknown]
  - Depressed mood [Unknown]
  - Intentional product use issue [Recovered/Resolved]
  - Arthralgia [Unknown]
  - Pain in extremity [Unknown]

NARRATIVE: CASE EVENT DATE: 20170325
